FAERS Safety Report 24566947 (Version 1)
Quarter: 2024Q4

REPORT INFORMATION
  Report Type: Spontaneous
  Country: CN (occurrence: CN)
  Receive Date: 20241030
  Receipt Date: 20241030
  Transmission Date: 20250114
  Serious: Yes (Hospitalization, Other)
  Sender: MERCK KGAA
  Company Number: CN-Merck Healthcare KGaA-2024055807

PATIENT
  Age: 53 Year
  Sex: Female
  Weight: 59 kg

DRUGS (1)
  1. EUTHYROX [Suspect]
     Active Substance: LEVOTHYROXINE SODIUM
     Indication: Hyperthyroidism
     Route: 048
     Dates: start: 20230601, end: 20241018

REACTIONS (3)
  - Nephrolithiasis [Recovering/Resolving]
  - Condition aggravated [Recovering/Resolving]
  - Ureterolithiasis [Recovering/Resolving]

NARRATIVE: CASE EVENT DATE: 20241014
